FAERS Safety Report 16874723 (Version 4)
Quarter: 2019Q4

REPORT INFORMATION
  Report Type: Report from Study
  Country: BR (occurrence: BR)
  Receive Date: 20191001
  Receipt Date: 20191111
  Transmission Date: 20200122
  Serious: Yes (Hospitalization, Other)
  Sender: FDA-Public Use
  Company Number: PHHY2019BR157691

PATIENT
  Age: 59 Year
  Sex: Male

DRUGS (8)
  1. COSENTYX [Suspect]
     Active Substance: SECUKINUMAB
     Indication: PSORIASIS
     Dosage: UNK MG
     Route: 065
     Dates: start: 20190409
  2. VASOPRIL [Concomitant]
     Indication: PRODUCT USED FOR UNKNOWN INDICATION
     Dosage: AT NIGHT
     Route: 065
  3. COSENTYX [Suspect]
     Active Substance: SECUKINUMAB
     Dosage: UNK
     Route: 065
     Dates: start: 20190803
  4. SOMALGIN CARDIO [Concomitant]
     Active Substance: ASPIRIN\DIHYDROXYALUMINUM AMINOACETATE ANHYDROUS\MAGNESIUM CARBONATE
     Indication: PRODUCT USED FOR UNKNOWN INDICATION
     Dosage: AFTER LUNCH
     Route: 065
  5. LIPITOR [Concomitant]
     Active Substance: ATORVASTATIN CALCIUM
     Indication: PRODUCT USED FOR UNKNOWN INDICATION
     Dosage: AFTER LUNCH
     Route: 065
  6. COSENTYX [Suspect]
     Active Substance: SECUKINUMAB
     Dosage: UNK
     Route: 065
     Dates: start: 20190702
  7. COSENTYX [Suspect]
     Active Substance: SECUKINUMAB
     Dosage: 300 MG
     Route: 065
     Dates: start: 20190902
  8. LAMITOR [Concomitant]
     Active Substance: LAMOTRIGINE
     Indication: PRODUCT USED FOR UNKNOWN INDICATION
     Dosage: AT NIGHT
     Route: 065

REACTIONS (24)
  - Swelling [Unknown]
  - Tremor [Unknown]
  - Vomiting [Recovered/Resolved]
  - Renal cyst [Unknown]
  - Chills [Unknown]
  - Dehydration [Unknown]
  - Oedema [Recovered/Resolved]
  - Lemierre syndrome [Unknown]
  - Thrombophlebitis [Unknown]
  - Asthenia [Unknown]
  - Pain [Unknown]
  - Atelectasis [Unknown]
  - Pyrexia [Unknown]
  - Cough [Unknown]
  - Diarrhoea [Unknown]
  - Pleural effusion [Unknown]
  - Bacterial infection [Unknown]
  - Spinal disorder [Unknown]
  - Mediastinal disorder [Unknown]
  - Neck pain [Unknown]
  - Klebsiella infection [Unknown]
  - Musculoskeletal stiffness [Unknown]
  - Haemoglobin decreased [Unknown]
  - Arteriosclerosis [Unknown]

NARRATIVE: CASE EVENT DATE: 20190920
